FAERS Safety Report 9051002 (Version 3)
Quarter: 2013Q4

REPORT INFORMATION
  Report Type: Report from Study
  Country: DE (occurrence: DE)
  Receive Date: 20130205
  Receipt Date: 20131204
  Transmission Date: 20140711
  Serious: Yes (Hospitalization)
  Sender: FDA-Public Use
  Company Number: DE-CELGENEUS-062-21660-13014239

PATIENT
  Age: 73 Year
  Sex: Female
  Weight: 79 kg

DRUGS (6)
  1. ABRAXANE [Suspect]
     Indication: BREAST CANCER
     Route: 041
     Dates: start: 20120319, end: 20120416
  2. ABRAXANE [Suspect]
     Route: 041
     Dates: start: 20120604
  3. CAPECITABINE [Suspect]
     Indication: BREAST CANCER
     Dosage: 4000 MILLIGRAM/SQ. METER
     Route: 048
     Dates: start: 20120319, end: 20120430
  4. BISOPROLOL [Concomitant]
     Indication: HYPERTENSION
     Route: 065
  5. BISOPROLOL [Concomitant]
     Indication: BRADYARRHYTHMIA
  6. UNKNOWNDRUG [Concomitant]

REACTIONS (2)
  - Cystitis haemorrhagic [Recovered/Resolved]
  - Cystitis [Recovered/Resolved]
